FAERS Safety Report 25239227 (Version 3)
Quarter: 2025Q4

REPORT INFORMATION
  Report Type: Spontaneous
  Country: CA (occurrence: CA)
  Receive Date: 20250425
  Receipt Date: 20251019
  Transmission Date: 20260118
  Serious: Yes (Other)
  Sender: CELLTRION
  Company Number: CA-PFIZER INC-202500085755

PATIENT

DRUGS (34)
  1. INFLIXIMAB [Suspect]
     Active Substance: INFLIXIMAB
     Indication: Crohn^s disease
     Dosage: 400 MG
     Route: 042
  2. INFLIXIMAB [Suspect]
     Active Substance: INFLIXIMAB
     Dosage: 400 MG
     Route: 042
  3. INFLECTRA [Suspect]
     Active Substance: INFLIXIMAB-DYYB
     Indication: Crohn^s disease
     Dosage: 400 MG, INDUCTION W0, 2, 6, THEN Q8 WEEKS
     Route: 042
     Dates: start: 20250225
  4. INFLECTRA [Suspect]
     Active Substance: INFLIXIMAB-DYYB
     Dosage: 400 MG, 8 WEEKS (INDUCTION W0, 2, 6, THEN Q8 WEEKS)
     Route: 042
     Dates: start: 20250417
  5. ASACOL [Concomitant]
     Active Substance: MESALAMINE
     Dosage: 800 MG, 3X/DAY
     Route: 065
  6. ASACOL [Concomitant]
     Active Substance: MESALAMINE
     Dosage: 800 MG 3 EVERY1 DAYS
     Route: 065
  7. AMITRIPTYLINE [Concomitant]
     Active Substance: AMITRIPTYLINE
     Dosage: 200 MG, 1X/DAY
     Route: 048
  8. ALBUTEROL SULFATE [Concomitant]
     Active Substance: ALBUTEROL SULFATE
     Dosage: 100 UG, AS NEEDED UP TO 4X DAILY
     Route: 065
  9. CYTOMEL [Concomitant]
     Active Substance: LIOTHYRONINE SODIUM
     Dosage: 25 UG, (HALF TAB EVERY OTHER DAY)
     Route: 065
  10. CAMBIA [Concomitant]
     Active Substance: DICLOFENAC POTASSIUM
     Dosage: 500 MG, 2X/DAY (PRN)
     Route: 065
  11. CAMBIA [Concomitant]
     Active Substance: DICLOFENAC POTASSIUM
     Dosage: 500 MG 2 EVERY 1 DAYS
     Route: 065
  12. DULOXETINE [Concomitant]
     Active Substance: DULOXETINE
     Dosage: 600 MG, 1X/DAY
     Route: 048
  13. JARDIANCE [Concomitant]
     Active Substance: EMPAGLIFLOZIN
     Dosage: 25 MG, 1X/DAY
     Route: 048
  14. JANUVIA [Concomitant]
     Active Substance: SITAGLIPTIN PHOSPHATE
     Dosage: 100 MG, 1X/DAY
     Route: 065
  15. LORAZEPAM [Concomitant]
     Active Substance: LORAZEPAM
     Dosage: 0.7 MG, AS NEEDED
     Route: 048
  16. METHOTREXATE [Concomitant]
     Active Substance: METHOTREXATE
     Dosage: 1 DF, DOSAGE IS UNKNOWN
     Route: 065
     Dates: start: 201908
  17. METFORMIN [Concomitant]
     Active Substance: METFORMIN HYDROCHLORIDE
     Dosage: 500 MG, 2X/DAY
     Route: 048
  18. METFORMIN [Concomitant]
     Active Substance: METFORMIN HYDROCHLORIDE
     Dosage: 500 MG 2 EVERY 1 DAYS
     Route: 048
  19. PREGABALIN [Concomitant]
     Active Substance: PREGABALIN
     Dosage: 150 MG, 2X/DAY (Q 2 WEEKS)
     Route: 065
  20. PREGABALIN [Concomitant]
     Active Substance: PREGABALIN
     Dosage: 150 MG 2 EVERY 1 DAYS
     Route: 065
  21. OMEPRAZOLE [Concomitant]
     Active Substance: OMEPRAZOLE
     Dosage: 2.5 MG, 1X/DAY
     Route: 048
  22. PANTOPRAZOLE [Concomitant]
     Active Substance: PANTOPRAZOLE
     Dosage: 40 MG, 2X/DAY
     Route: 048
  23. PANTOPRAZOLE [Concomitant]
     Active Substance: PANTOPRAZOLE
     Dosage: 40 MG 2 EVERY 1 DAYS
     Route: 048
  24. SYNTHROID [Concomitant]
     Active Substance: LEVOTHYROXINE SODIUM
     Dosage: 0.175 DF, 1X/DAY
     Route: 065
  25. SUMATRIPTAN [Concomitant]
     Active Substance: SUMATRIPTAN
     Dosage: 1 DF, 1X/DAY (6MG/0.5ML Q24HRS, INJ)
     Route: 065
  26. SYMBICORT [Concomitant]
     Active Substance: BUDESONIDE\FORMOTEROL FUMARATE DIHYDRATE
     Dosage: 200 MG, 1X/DAY
     Route: 055
  27. TESTOSTERONE CYPIONATE [Concomitant]
     Active Substance: TESTOSTERONE CYPIONATE
     Dosage: 100 MG, EVERY 3 WEEKS (INJ.)
     Route: 065
  28. TRAMADOL [Concomitant]
     Active Substance: TRAMADOL
     Dosage: 2X/DAY (325MG/37.75MF PRN)
     Route: 048
  29. TRAMADOL [Concomitant]
     Active Substance: TRAMADOL
     Dosage: 1 DF 1 EVERY 1 DAYS
     Route: 048
  30. ZOPICLONE [Concomitant]
     Active Substance: ZOPICLONE
     Dosage: 7.5 MG, 1X/DAY
     Route: 048
  31. BUDESONIDE\FORMOTEROL FUMARATE [Concomitant]
     Active Substance: BUDESONIDE\FORMOTEROL FUMARATE
     Dosage: 200 MG 1 EVERY 1 DAYS
  32. LIOTHYRONINE SODIUM [Concomitant]
     Active Substance: LIOTHYRONINE SODIUM
     Dosage: 25 MICROGRAM
     Route: 065
  33. TESTOSTERONE CYPIONATE [Concomitant]
     Active Substance: TESTOSTERONE CYPIONATE
     Dosage: 100 MG 1 EVERY 3 WEEKS
     Route: 065
  34. DULOXETINE [Concomitant]
     Active Substance: DULOXETINE
     Dosage: 600 MG 1 EVERY 1 DAYS
     Route: 048

REACTIONS (4)
  - Loss of consciousness [Recovering/Resolving]
  - Paraesthesia [Recovering/Resolving]
  - Dizziness [Recovering/Resolving]
  - Underdose [Unknown]

NARRATIVE: CASE EVENT DATE: 20250417
